FAERS Safety Report 14563222 (Version 1)
Quarter: 2018Q1

REPORT INFORMATION
  Report Type: Spontaneous
  Country: JP (occurrence: JP)
  Receive Date: 20180222
  Receipt Date: 20180222
  Transmission Date: 20180509
  Serious: Yes (Other)
  Sender: FDA-Public Use
  Company Number: JP-PINNACLE BIOLOGICS BV-2018-CLI-000008

PATIENT
  Age: 43 Year
  Sex: Male

DRUGS (1)
  1. PHOTOFRIN [Suspect]
     Active Substance: PORFIMER SODIUM
     Indication: LARYNGEAL SQUAMOUS CELL CARCINOMA
     Dosage: 2 MG/KG, UNK
     Route: 042

REACTIONS (3)
  - Vocal cord thickening [Recovered/Resolved]
  - Off label use [Unknown]
  - Dyspnoea [Recovered/Resolved]
